FAERS Safety Report 24950494 (Version 1)
Quarter: 2025Q1

REPORT INFORMATION
  Report Type: Spontaneous
  Country: AU (occurrence: AU)
  Receive Date: 20250210
  Receipt Date: 20250210
  Transmission Date: 20250408
  Serious: Yes (Hospitalization, Other)
  Sender: SANOFI AVENTIS
  Company Number: AU-ASTELLAS-2025-AER-006425

PATIENT
  Age: 64 Year
  Sex: Female

DRUGS (12)
  1. TAMSULOSIN HYDROCHLORIDE [Suspect]
     Active Substance: TAMSULOSIN HYDROCHLORIDE
     Indication: Nephrolithiasis
     Route: 065
     Dates: start: 20241125
  2. INDOMETHACIN [Suspect]
     Active Substance: INDOMETHACIN
     Indication: Product used for unknown indication
     Route: 065
     Dates: start: 20241125
  3. IBUPROFEN [Concomitant]
     Active Substance: IBUPROFEN
     Indication: Product used for unknown indication
     Route: 065
  4. MORPHINE [Concomitant]
     Active Substance: MORPHINE
     Indication: Product used for unknown indication
     Route: 048
  5. OXYCODONE [Concomitant]
     Active Substance: OXYCODONE
     Indication: Product used for unknown indication
     Route: 048
  6. ACETAMINOPHEN [Concomitant]
     Active Substance: ACETAMINOPHEN
     Indication: Product used for unknown indication
     Route: 065
  7. MYLANTA II [ALUMINIUM HYDROXIDE;MAGNESIUM HYDROXIDE;SIMETICONE] [Concomitant]
     Indication: Product used for unknown indication
     Route: 065
  8. PULMICORT TURBUHALER [Concomitant]
     Active Substance: BUDESONIDE
     Indication: Product used for unknown indication
     Route: 045
  9. SERETIDE [Concomitant]
     Active Substance: FLUTICASONE PROPIONATE\SALMETEROL XINAFOATE
     Indication: Product used for unknown indication
     Route: 065
  10. AMLODIPINE [Concomitant]
     Active Substance: AMLODIPINE BESYLATE
     Indication: Product used for unknown indication
     Route: 065
  11. PREDNISOLONE [Concomitant]
     Active Substance: PREDNISOLONE
     Indication: Vasculitis
     Dosage: 5 MG, QD
     Route: 065
  12. ALBUTEROL SULFATE [Concomitant]
     Active Substance: ALBUTEROL SULFATE
     Indication: Product used for unknown indication
     Route: 065

REACTIONS (3)
  - Anaphylactic reaction [Unknown]
  - Off label use [Unknown]
  - Intentional product use issue [Unknown]

NARRATIVE: CASE EVENT DATE: 20241125
